FAERS Safety Report 15020964 (Version 1)
Quarter: 2018Q2

REPORT INFORMATION
  Report Type: Spontaneous
  Country: US (occurrence: US)
  Receive Date: 20180618
  Receipt Date: 20180618
  Transmission Date: 20180711
  Serious: No
  Sender: FDA-Public Use
  Company Number: US-SUNOVION-2018SUN002434

PATIENT
  Sex: Male

DRUGS (1)
  1. LATUDA [Suspect]
     Active Substance: LURASIDONE HYDROCHLORIDE
     Dosage: 20 MG, UNK
     Route: 048
     Dates: start: 201805

REACTIONS (4)
  - Penile infection [Unknown]
  - Penile odour [Unknown]
  - Penile discharge [Unknown]
  - Circumcision [Unknown]

NARRATIVE: CASE EVENT DATE: 20180529
